FAERS Safety Report 24135210 (Version 3)
Quarter: 2024Q3

REPORT INFORMATION
  Report Type: Spontaneous
  Country: US (occurrence: US)
  Receive Date: 20240725
  Receipt Date: 20240913
  Transmission Date: 20241017
  Serious: No
  Sender: BIOGEN
  Company Number: US-BIOGEN-2024BI01274426

PATIENT
  Sex: Female

DRUGS (5)
  1. AVONEX PEN [Suspect]
     Active Substance: INTERFERON BETA-1A
     Indication: Multiple sclerosis
     Route: 050
     Dates: end: 20231231
  2. AVONEX PEN [Suspect]
     Active Substance: INTERFERON BETA-1A
  3. AVONEX PEN [Suspect]
     Active Substance: INTERFERON BETA-1A
  4. AVONEX PEN [Suspect]
     Active Substance: INTERFERON BETA-1A
  5. DONEPEZIL [Suspect]
     Active Substance: DONEPEZIL\DONEPEZIL HYDROCHLORIDE
     Indication: Product used for unknown indication
     Route: 050

REACTIONS (3)
  - Confusional state [Not Recovered/Not Resolved]
  - Malaise [Unknown]
  - Nausea [Unknown]
